FAERS Safety Report 9003677 (Version 1)
Quarter: 2013Q1

REPORT INFORMATION
  Report Type: Spontaneous
  Country: US (occurrence: US)
  Receive Date: 20130108
  Receipt Date: 20130108
  Transmission Date: 20140127
  Serious: No
  Sender: FDA-Public Use
  Company Number: US-GLAXOSMITHKLINE-A0959240A

PATIENT
  Age: 69 Year
  Sex: Female

DRUGS (12)
  1. LOVAZA [Suspect]
     Indication: BLOOD CHOLESTEROL INCREASED
     Dosage: 4CAP PER DAY
     Route: 048
     Dates: start: 201101
  2. ARIMIDEX [Concomitant]
  3. LOTREL [Concomitant]
  4. TRIAMTEREN + HYDROCHLOROTHIAZIDE [Concomitant]
  5. SYNTHROID [Concomitant]
  6. TRAMADOL [Concomitant]
  7. DUONEB [Concomitant]
  8. COMBIVENT [Concomitant]
  9. PRILOSEC [Concomitant]
  10. GAVISCON LIQUID [Concomitant]
  11. PREMARIN [Concomitant]
  12. OXYGEN [Concomitant]

REACTIONS (3)
  - Eructation [Recovering/Resolving]
  - Nausea [Recovering/Resolving]
  - Vomiting [Recovering/Resolving]
